FAERS Safety Report 9174217 (Version 1)
Quarter: 2013Q1

REPORT INFORMATION
  Report Type: Spontaneous
  Country: US (occurrence: US)
  Receive Date: 20130320
  Receipt Date: 20130320
  Transmission Date: 20140127
  Serious: Yes (Other)
  Sender: FDA-Public Use
  Company Number: US-PFIZER INC-2013091070

PATIENT
  Age: 34 Year
  Sex: Female
  Weight: 122.45 kg

DRUGS (2)
  1. LYRICA [Suspect]
     Dosage: 150 MG, 2X/DAY
  2. LYRICA [Suspect]
     Dosage: 225 MG, 2X/DAY

REACTIONS (3)
  - Fluid retention [Unknown]
  - Weight increased [Unknown]
  - Oedema peripheral [Unknown]
